FAERS Safety Report 9149413 (Version 1)
Quarter: 2013Q1

REPORT INFORMATION
  Report Type: Report from Study
  Country: US (occurrence: US)
  Receive Date: 20130308
  Receipt Date: 20130308
  Transmission Date: 20140127
  Serious: Yes (Hospitalization)
  Sender: FDA-Public Use
  Company Number: PHHO2013US003391

PATIENT
  Age: 65 Year
  Sex: Male
  Weight: 132.2 kg

DRUGS (9)
  1. BLINDED ENALAPRIL [Suspect]
     Indication: CARDIAC FAILURE CHRONIC
     Dosage: DOUBLE BLINDED
     Route: 048
     Dates: start: 20110222, end: 20130228
  2. BLINDED LCZ696 [Suspect]
     Indication: CARDIAC FAILURE CHRONIC
     Dosage: DOUBLE BLINDED
     Route: 048
     Dates: start: 20110222, end: 20130228
  3. BLINDED NO TREATMENT RECEIVED [Suspect]
     Indication: CARDIAC FAILURE CHRONIC
     Dosage: DOUBLE BLINDED
     Route: 048
     Dates: start: 20110222, end: 20130228
  4. METOLAZONE [Suspect]
     Indication: FLUID RETENTION
     Dosage: 10 MG, TID
     Dates: start: 20130219
  5. FUROSEMIDE [Suspect]
     Dosage: 40 MG, QID
     Dates: start: 20130219, end: 20130227
  6. CARVEDILOL [Concomitant]
     Indication: CARDIAC FAILURE CHRONIC
     Dosage: 50 MG, BID
     Dates: start: 20101019
  7. DOXAZOSIN [Concomitant]
     Indication: HYPERTENSION
     Dosage: 8 MG, BID
     Dates: start: 20121030
  8. SIMVASTATIN [Concomitant]
     Indication: HYPERLIPIDAEMIA
     Dosage: 40 MG, QHS
     Dates: start: 20100903
  9. INSULIN [Concomitant]
     Indication: DIABETES MELLITUS
     Dosage: 42 U, BID
     Dates: start: 20091130

REACTIONS (1)
  - Renal failure acute [Recovered/Resolved with Sequelae]
